FAERS Safety Report 12723225 (Version 1)
Quarter: 2016Q3

REPORT INFORMATION
  Report Type: Spontaneous
  Country: US (occurrence: US)
  Receive Date: 20160908
  Receipt Date: 20160908
  Transmission Date: 20161109
  Serious: Yes (Other)
  Sender: FDA-Public Use
  Company Number: US-TEVA-690825ACC

PATIENT
  Sex: Female
  Weight: 70.82 kg

DRUGS (4)
  1. PARAGARD T 380A [Suspect]
     Active Substance: COPPER
     Indication: CONTRACEPTION
     Dates: start: 20160822, end: 20160830
  2. PARAGARD T 380A [Suspect]
     Active Substance: COPPER
     Dates: start: 20160830
  3. OMEPRAZOLE. [Concomitant]
     Active Substance: OMEPRAZOLE
  4. ACYCLOVIR. [Concomitant]
     Active Substance: ACYCLOVIR

REACTIONS (2)
  - Device dislocation [Recovered/Resolved]
  - Discomfort [Recovered/Resolved]
